FAERS Safety Report 25713854 (Version 1)
Quarter: 2025Q3

REPORT INFORMATION
  Report Type: Spontaneous
  Country: CN (occurrence: CN)
  Receive Date: 20250822
  Receipt Date: 20250822
  Transmission Date: 20251020
  Serious: Yes (Other)
  Sender: DR REDDYS
  Company Number: None

PATIENT
  Age: 34 Year
  Sex: Male
  Weight: 70 kg

DRUGS (4)
  1. OLANZAPINE [Suspect]
     Active Substance: OLANZAPINE
     Indication: Craniocerebral injury
     Dosage: 10MG,QD
     Route: 048
     Dates: start: 20250801, end: 20250804
  2. OLANZAPINE [Suspect]
     Active Substance: OLANZAPINE
     Dosage: 5MG,QD
     Route: 048
     Dates: start: 20250804, end: 20250805
  3. VALPROATE SODIUM [Suspect]
     Active Substance: VALPROATE SODIUM
     Indication: Craniocerebral injury
     Dosage: 0.4G,TID
     Route: 048
     Dates: start: 20250729, end: 20250804
  4. VALPROATE SODIUM [Suspect]
     Active Substance: VALPROATE SODIUM
     Dosage: 0.2G,TID
     Route: 048
     Dates: start: 20250801, end: 20250804

REACTIONS (1)
  - Hepatic function abnormal [Recovering/Resolving]

NARRATIVE: CASE EVENT DATE: 20250804
